FAERS Safety Report 15865678 (Version 1)
Quarter: 2019Q1

REPORT INFORMATION
  Report Type: Spontaneous
  Country: US (occurrence: US)
  Receive Date: 20190125
  Receipt Date: 20190125
  Transmission Date: 20190417
  Serious: Yes (Other)
  Sender: FDA-Public Use
  Company Number: US-LUPIN PHARMACEUTICALS INC.-2017-07501

PATIENT
  Age: 37 Year
  Sex: Female

DRUGS (1)
  1. FENOFIBRATE. [Suspect]
     Active Substance: FENOFIBRATE
     Indication: HYPERTRIGLYCERIDAEMIA
     Dosage: 160 MG, QD
     Route: 065

REACTIONS (1)
  - Drug-induced liver injury [Recovered/Resolved]
